FAERS Safety Report 11814699 (Version 2)
Quarter: 2016Q1

REPORT INFORMATION
  Report Type: Spontaneous
  Country: BR (occurrence: BR)
  Receive Date: 20151209
  Receipt Date: 20160104
  Transmission Date: 20160525
  Serious: Yes (Other)
  Sender: FDA-Public Use
  Company Number: BR-VALIDUS PHARMACEUTICALS LLC-BR-2015VAL000796

PATIENT

DRUGS (3)
  1. PARLODEL [Suspect]
     Active Substance: BROMOCRIPTINE MESYLATE
     Indication: PITUITARY TUMOUR BENIGN
     Dosage: 15 MG, UNK
     Route: 048
  2. PARLODEL [Suspect]
     Active Substance: BROMOCRIPTINE MESYLATE
     Dosage: 7 MG, UNK
     Route: 048
  3. PARLODEL [Suspect]
     Active Substance: BROMOCRIPTINE MESYLATE
     Dosage: 2 DF (2.5 MG) QD
     Route: 048

REACTIONS (28)
  - Neoplasm [Recovered/Resolved]
  - Labyrinthitis [Unknown]
  - Disorientation [Unknown]
  - Liver disorder [Unknown]
  - Lack of satiety [Unknown]
  - Haemorrhage [Recovered/Resolved]
  - Dyspnoea [Unknown]
  - Nausea [Unknown]
  - Myocardial infarction [Recovered/Resolved]
  - Nasal dryness [Recovered/Resolved]
  - Balance disorder [Recovered/Resolved]
  - Somnolence [Unknown]
  - Dizziness [Recovering/Resolving]
  - Hypersensitivity [Unknown]
  - Dysgeusia [Unknown]
  - Malaise [Not Recovered/Not Resolved]
  - Headache [Not Recovered/Not Resolved]
  - Toxicity to various agents [Unknown]
  - Dry throat [Recovered/Resolved]
  - Anxiety [Unknown]
  - Abdominal pain upper [Not Recovered/Not Resolved]
  - Hypertension [Recovering/Resolving]
  - Blood prolactin increased [Not Recovered/Not Resolved]
  - Tachycardia [Unknown]
  - Sinusitis [Unknown]
  - Nasal congestion [Unknown]
  - Renal disorder [Unknown]
  - Insomnia [Recovered/Resolved]
